FAERS Safety Report 9820464 (Version 1)
Quarter: 2013Q4

REPORT INFORMATION
  Report Type: Spontaneous
  Country: US (occurrence: None)
  Receive Date: 20131028
  Receipt Date: 20131028
  Transmission Date: 20140711
  Serious: No
  Sender: FDA-Public Use
  Company Number: SYM-2013-00268

PATIENT
  Age: 46 Year
  Sex: 0

DRUGS (5)
  1. BUPROPION EXTENDED RELEASE [Suspect]
     Route: 048
  2. METHAMPHETAMINE [Suspect]
     Route: 048
  3. PHENYCYCLIDINE [Suspect]
     Route: 048
  4. BENZODIAZEPINE [Suspect]
     Route: 048
  5. PAROXETINE [Suspect]

REACTIONS (1)
  - Completed suicide [None]
